FAERS Safety Report 8236789-3 (Version None)
Quarter: 2012Q1

REPORT INFORMATION
  Report Type: 
  Country: None (occurrence: None)
  Receive Date: 20120327
  Receipt Date: 20120316
  Transmission Date: 20120608
  Serious: Yes (Other)
  Sender: FDA-Public Use
  Company Number: US-JNJFOC-20120214653

PATIENT
  Sex: Female

DRUGS (2)
  1. TYLENOL-500 [Suspect]
     Route: 048
  2. TYLENOL-500 [Suspect]
     Indication: BACK PAIN
     Route: 048

REACTIONS (5)
  - BLOOD PRESSURE INCREASED [None]
  - HEART RATE INCREASED [None]
  - TONGUE BLISTERING [None]
  - ORAL PAIN [None]
  - NAUSEA [None]
